FAERS Safety Report 8738131 (Version 3)
Quarter: 2013Q4

REPORT INFORMATION
  Report Type: Report from Study
  Country: US (occurrence: US)
  Receive Date: 20120823
  Receipt Date: 20131108
  Transmission Date: 20140711
  Serious: Yes (Other)
  Sender: FDA-Public Use
  Company Number: US-009507513-1208USA006088

PATIENT
  Sex: Male

DRUGS (4)
  1. REBETOL [Suspect]
     Indication: HEPATITIS C
     Dosage: UNK
     Dates: start: 20120803
  2. REBETOL [Suspect]
     Dosage: UNK
     Route: 048
     Dates: start: 20040501, end: 20040801
  3. PEGINTRON [Suspect]
     Indication: HEPATITIS C
     Dosage: UNK
     Dates: start: 20120803
  4. PEGASYS [Suspect]
     Indication: HEPATITIS C
     Dosage: UNK
     Dates: start: 20040501, end: 20040801

REACTIONS (5)
  - Weight decreased [Unknown]
  - Anaemia [Unknown]
  - Insomnia [Unknown]
  - Fatigue [Unknown]
  - Asthenia [Unknown]
